FAERS Safety Report 21366791 (Version 2)
Quarter: 2023Q2

REPORT INFORMATION
  Report Type: Spontaneous
  Country: US (occurrence: US)
  Receive Date: 20220923
  Receipt Date: 20230411
  Transmission Date: 20230721
  Serious: No
  Sender: FDA-Public Use
  Company Number: US-SA-SAC20220916002083

PATIENT
  Age: 37 Year
  Sex: Female

DRUGS (5)
  1. DUPIXENT [Suspect]
     Active Substance: DUPILUMAB
     Indication: Asthma
     Dosage: 300 MG, QOW
     Route: 058
     Dates: start: 20210406
  2. GABAPENTIN [Concomitant]
     Active Substance: GABAPENTIN
     Dosage: UNK
  3. NALTREXONE HYDROCHLORIDE [Concomitant]
     Active Substance: NALTREXONE HYDROCHLORIDE
     Dosage: UNK
  4. PRAZOSIN HYDROCHLORIDE [Concomitant]
     Active Substance: PRAZOSIN HYDROCHLORIDE
     Dosage: UNK
  5. VIIBRYD [Concomitant]
     Active Substance: VILAZODONE HYDROCHLORIDE
     Dosage: UNK

REACTIONS (4)
  - Hypokinesia [Not Recovered/Not Resolved]
  - Impaired quality of life [Not Recovered/Not Resolved]
  - Asthma [Unknown]
  - Drug ineffective [Unknown]

NARRATIVE: CASE EVENT DATE: 20230301
